APPROVED DRUG PRODUCT: HYDRAMINE
Active Ingredient: DIPHENHYDRAMINE HYDROCHLORIDE
Strength: 12.5MG/5ML
Dosage Form/Route: SYRUP;ORAL
Application: A070205 | Product #001
Applicant: ALPHARMA US PHARMACEUTICALS DIVISION
Approved: Jan 28, 1986 | RLD: No | RS: No | Type: DISCN